FAERS Safety Report 6433508-8 (Version None)
Quarter: 2009Q4

REPORT INFORMATION
  Report Type: 
  Country: None (occurrence: None)
  Receive Date: 20091106
  Receipt Date: 20091106
  Transmission Date: 20100525
  Serious: No
  Sender: FDA-Public Use
  Company Number: None

PATIENT
  Age: 63 Year
  Sex: Male
  Weight: 115.2 kg

DRUGS (2)
  1. HYDROCHLOROTHIAZIDE [Suspect]
     Indication: HYPERTENSION
     Dosage: 25 MG EVERY DAY PO
     Route: 048
     Dates: start: 20081126, end: 20090403
  2. MESALAMINE [Suspect]
     Dosage: 400 MG TID PO
     Route: 048
     Dates: start: 20081126, end: 20090410

REACTIONS (1)
  - THROMBOCYTOPENIA [None]
